FAERS Safety Report 19473080 (Version 2)
Quarter: 2021Q3

REPORT INFORMATION
  Report Type: Spontaneous
  Country: JP (occurrence: JP)
  Receive Date: 20210629
  Receipt Date: 20210820
  Transmission Date: 20211014
  Serious: Yes (Life-Threatening)
  Sender: FDA-Public Use
  Company Number: JP-ELI_LILLY_AND_COMPANY-JP202106013085

PATIENT
  Age: 64 Year
  Sex: Male
  Weight: 62 kg

DRUGS (21)
  1. DULOXETINE HYDROCHLORIDE. [Suspect]
     Active Substance: DULOXETINE HYDROCHLORIDE
     Indication: DEPRESSION
     Dosage: 20 MG, DAILY
     Route: 048
     Dates: start: 20170829, end: 20190512
  2. DULOXETINE HYDROCHLORIDE. [Suspect]
     Active Substance: DULOXETINE HYDROCHLORIDE
     Indication: ARTHRALGIA
     Dosage: 30 UNK
     Route: 048
     Dates: start: 20190513, end: 20210515
  3. DILTIAZEM. [Concomitant]
     Active Substance: DILTIAZEM
     Indication: PRINZMETAL ANGINA
     Dosage: 90 MG
     Route: 048
     Dates: start: 20180525
  4. TIZANIDINE. [Concomitant]
     Active Substance: TIZANIDINE
     Indication: MUSCULOSKELETAL STIFFNESS
     Dosage: 2?3 MG
     Route: 048
     Dates: start: 20110111
  5. MONTELUKAST [Concomitant]
     Active Substance: MONTELUKAST SODIUM
     Indication: COUGH
     Dosage: 10 MG
     Route: 048
     Dates: start: 20200525
  6. BILANOA [Concomitant]
     Active Substance: BILASTINE
     Indication: PRURITUS
  7. MONTELUKAST [Concomitant]
     Active Substance: MONTELUKAST SODIUM
     Indication: PRODUCTIVE COUGH
  8. CANDESARTAN. [Concomitant]
     Active Substance: CANDESARTAN
     Route: 048
  9. ETIZOLAM [Concomitant]
     Active Substance: ETIZOLAM
     Indication: MUSCULOSKELETAL STIFFNESS
     Dosage: 0.5?1 MG
     Route: 048
     Dates: start: 20210208
  10. CARBOCISTEINE [Concomitant]
     Active Substance: CARBOCYSTEINE
     Indication: COUGH
     Dosage: 1500 MG
     Route: 048
     Dates: start: 20181225
  11. TELMISARTAN. [Concomitant]
     Active Substance: TELMISARTAN
     Indication: HYPERTENSION
     Dosage: 40 MG
     Route: 048
     Dates: start: 20181120
  12. CARBOCISTEINE [Concomitant]
     Active Substance: CARBOCYSTEINE
     Indication: PRODUCTIVE COUGH
  13. BILANOA [Concomitant]
     Active Substance: BILASTINE
     Indication: EYE ALLERGY
  14. BILANOA [Concomitant]
     Active Substance: BILASTINE
     Indication: RHINITIS ALLERGIC
     Dosage: UNK
     Route: 048
     Dates: start: 20180522
  15. CLOTIAZEPAM [Concomitant]
     Active Substance: CLOTIAZEPAM
     Indication: MUSCULOSKELETAL STIFFNESS
     Dosage: 5 MG
     Route: 048
     Dates: start: 20180420
  16. AMBOXOL [Concomitant]
     Indication: PRODUCTIVE COUGH
  17. NILVADIPINE [Concomitant]
     Active Substance: NILVADIPINE
     Indication: HYPERTENSION
     Dosage: 8 MG
     Route: 048
     Dates: start: 20130204
  18. AMBOXOL [Concomitant]
     Indication: COUGH
     Dosage: 45 MG
     Route: 048
     Dates: start: 20190827
  19. NEXIUM I.V. [Concomitant]
     Active Substance: ESOMEPRAZOLE SODIUM
     Indication: ABDOMINAL PAIN UPPER
     Dosage: 10 MG
     Route: 048
     Dates: start: 202102
  20. RABEPRAZOLE [Concomitant]
     Active Substance: RABEPRAZOLE
     Indication: GASTROOESOPHAGEAL REFLUX DISEASE
     Dosage: 10 MG
     Route: 048
     Dates: start: 20170712, end: 20200301
  21. BOFUTSUSHOSAN [Concomitant]
     Active Substance: HERBALS
     Indication: HYPERLIPIDAEMIA
     Dosage: UNK
     Route: 048
     Dates: start: 20201009

REACTIONS (11)
  - Road traffic accident [Recovered/Resolved]
  - Abdominal pain upper [Unknown]
  - Abnormal dreams [Unknown]
  - Road traffic accident [Recovered/Resolved]
  - Musculoskeletal stiffness [Unknown]
  - Loss of consciousness [Recovered/Resolved]
  - Seizure [Recovered/Resolved]
  - Product dose omission issue [Unknown]
  - Initial insomnia [Unknown]
  - Nausea [Recovered/Resolved]
  - Dizziness [Recovered/Resolved]

NARRATIVE: CASE EVENT DATE: 202005
